FAERS Safety Report 9015780 (Version 1)
Quarter: 2013Q1

REPORT INFORMATION
  Report Type: Spontaneous
  Country: US (occurrence: US)
  Receive Date: 20130116
  Receipt Date: 20130116
  Transmission Date: 20140127
  Serious: Yes (Hospitalization)
  Sender: FDA-Public Use
  Company Number: PHEH2013US001139

PATIENT
  Age: 59 Year
  Sex: Female
  Weight: 71.2 kg

DRUGS (2)
  1. GILENYA [Suspect]
     Indication: MULTIPLE SCLEROSIS
     Dosage: 0.5 MG, QD
     Route: 048
     Dates: start: 20110109
  2. NEURONTIN [Suspect]
     Indication: PAIN IN EXTREMITY

REACTIONS (6)
  - Dehydration [Recovering/Resolving]
  - Bronchitis [Recovering/Resolving]
  - Cough [Recovering/Resolving]
  - Pulmonary congestion [Recovering/Resolving]
  - Pain in extremity [Not Recovered/Not Resolved]
  - Local swelling [Recovering/Resolving]
